FAERS Safety Report 6719295-4 (Version None)
Quarter: 2010Q2

REPORT INFORMATION
  Report Type: 
  Country: None (occurrence: None)
  Receive Date: 20100507
  Receipt Date: 20100428
  Transmission Date: 20101027
  Serious: Yes (Hospitalization)
  Sender: FDA-Public Use
  Company Number: 2010US001270

PATIENT
  Age: 81 Year
  Sex: Male
  Weight: 102 kg

DRUGS (14)
  1. AMEVIVE [Suspect]
     Indication: PSORIASIS
     Dosage: 15 MG, WEEKLY, INTRAMUSCULAR, 15 MG, WEEKLY, INTRAMUSCULAR
     Route: 030
     Dates: start: 20050323, end: 20050609
  2. METOPROLOL (METOPROLOL) [Concomitant]
  3. VYTORIN [Concomitant]
  4. CLONIDINE [Concomitant]
  5. JANUVIA [Concomitant]
  6. GYLBURIDE/METFORMIN (GLIBENCLAMIDE, METFORMIN HYDROCHLORIDE) [Concomitant]
  7. ACTOS [Concomitant]
  8. ASPIRIN [Concomitant]
  9. PLAVIX [Concomitant]
  10. CALTRATE 600+D (CLACIUM CARBONATE, ERGOCALCIFEROL) [Concomitant]
  11. ACID REDUCER (RANITIDINE HYDROCHLORIDE) [Concomitant]
  12. UNSPECIFIED METERED DOSE INHALER [Concomitant]
  13. DORZOLAMIDE HYDROCHLORIDE W/TIMOLOL MELATE (DORZOLAMIDE HYDROCHLORIDE, [Concomitant]
  14. MICARDIS [Concomitant]

REACTIONS (25)
  - ANAEMIA [None]
  - BLOOD GLUCOSE INCREASED [None]
  - BRADYCARDIA [None]
  - COGNITIVE DISORDER [None]
  - COLD SWEAT [None]
  - CONDITION AGGRAVATED [None]
  - CONFUSIONAL STATE [None]
  - DIARRHOEA [None]
  - DUODENITIS [None]
  - DYSPEPSIA [None]
  - FALL [None]
  - FATIGUE [None]
  - FEELING COLD [None]
  - GASTRIC ULCER [None]
  - GASTRITIS [None]
  - GASTROINTESTINAL HAEMORRHAGE [None]
  - HYPERHIDROSIS [None]
  - HYPOTENSION [None]
  - LOSS OF CONSCIOUSNESS [None]
  - PULSE ABNORMAL [None]
  - RENAL FAILURE [None]
  - SOMNOLENCE [None]
  - SURGERY [None]
  - SYNCOPE [None]
  - UNRESPONSIVE TO STIMULI [None]
